FAERS Safety Report 10398874 (Version 1)
Quarter: 2014Q1

REPORT INFORMATION
  Report Type: Spontaneous
  Country: US (occurrence: None)
  Receive Date: 20130815
  Receipt Date: 20130815
  Transmission Date: 20141002
  Serious: Yes (Other)
  Sender: FDA-Public Use
  Company Number: ADR-2012-01615

PATIENT
  Sex: Female

DRUGS (3)
  1. BACLOFEN INTRATHECAL (BACLOFEN INJECTION)1.0 ML/ML [Suspect]
  2. BACLOFEN INTRATHECAL (BACLOFEN INJECTION)1.0 ML/ML [Suspect]
     Indication: PAIN
  3. DILAUDID (HYDROMORPHONE) [Concomitant]

REACTIONS (3)
  - Somnolence [None]
  - Adverse drug reaction [None]
  - Sedation [None]
